FAERS Safety Report 17983494 (Version 1)
Quarter: 2020Q3

REPORT INFORMATION
  Report Type: Spontaneous
  Country: US (occurrence: US)
  Receive Date: 20200704
  Receipt Date: 20200704
  Transmission Date: 20201103
  Serious: No
  Sender: FDA-Public Use
  Company Number: None

PATIENT
  Age: 34 Year
  Sex: Female
  Weight: 75.6 kg

DRUGS (5)
  1. SALINE NASAL RINSE [Concomitant]
     Active Substance: SODIUM CHLORIDE
  2. CHLORHEXIDINE GLUCONATE. [Suspect]
     Active Substance: CHLORHEXIDINE GLUCONATE
     Indication: DENTAL CARE
     Dosage: ?          OTHER ROUTE:SWISHED IN MOUTH FOR 30 SECONDS?
     Dates: start: 20200610
  3. SALINE NASAL SPRAY [Concomitant]
     Active Substance: SODIUM CHLORIDE
  4. BLIOSOVI FE [Concomitant]
  5. MULTIVITAMIN [Concomitant]
     Active Substance: VITAMINS

REACTIONS (3)
  - Pruritus [None]
  - Pain [None]
  - Rash [None]

NARRATIVE: CASE EVENT DATE: 20200629
